FAERS Safety Report 14689832 (Version 1)
Quarter: 2018Q1

REPORT INFORMATION
  Report Type: Spontaneous
  Country: US (occurrence: US)
  Receive Date: 20180328
  Receipt Date: 20180328
  Transmission Date: 20180509
  Serious: No
  Sender: FDA-Public Use
  Company Number: US-SMITH AND NEPHEW, INC-2018SMT00013

PATIENT
  Age: 83 Year
  Sex: Female
  Weight: 77.98 kg

DRUGS (6)
  1. GENTAMICIN (PERRIGO) [Suspect]
     Active Substance: GENTAMICIN
     Indication: WOUND
     Dosage: UNK UNK, AS NEEDED SPARINGLY
     Route: 061
     Dates: start: 20180117
  2. LOSARTAN. [Concomitant]
     Active Substance: LOSARTAN
  3. GABAPENTIN. [Concomitant]
     Active Substance: GABAPENTIN
     Dosage: 100 MG, 1X/DAY BEFORE BED
  4. COLLAGENASE SANTYL [Suspect]
     Active Substance: COLLAGENASE CLOSTRIDIUM HISTOLYTICUM
     Indication: WOUND
     Dosage: UNK UNK, AS NEEDED SPARINGLY
     Route: 061
     Dates: start: 20180117
  5. GLIMEPIRIDE. [Concomitant]
     Active Substance: GLIMEPIRIDE
  6. ZETIA [Concomitant]
     Active Substance: EZETIMIBE

REACTIONS (8)
  - Retching [Recovered/Resolved]
  - Abdominal pain upper [Recovered/Resolved]
  - Hypersensitivity [Unknown]
  - Fatigue [Not Recovered/Not Resolved]
  - Tremor [Recovered/Resolved]
  - Sleep disorder [Not Recovered/Not Resolved]
  - Application site pain [Recovered/Resolved]
  - Pain [Recovering/Resolving]

NARRATIVE: CASE EVENT DATE: 20180118
